FAERS Safety Report 14345606 (Version 1)
Quarter: 2017Q4

REPORT INFORMATION
  Report Type: Spontaneous
  Country: US (occurrence: US)
  Receive Date: 20171230
  Receipt Date: 20171230
  Transmission Date: 20180321
  Serious: No
  Sender: FDA-Public Use
  Company Number: None

PATIENT
  Age: 75 Year
  Sex: Female

DRUGS (1)
  1. FORTEO [Suspect]
     Active Substance: TERIPARATIDE
     Indication: OSTEOPOROSIS
     Route: 058
     Dates: start: 20170424, end: 20171024

REACTIONS (5)
  - Upper limb fracture [None]
  - Dizziness [None]
  - Fall [None]
  - Pelvic fracture [None]
  - Herpes zoster [None]

NARRATIVE: CASE EVENT DATE: 20171024
